FAERS Safety Report 12261421 (Version 1)
Quarter: 2016Q2

REPORT INFORMATION
  Report Type: Report from Study
  Country: BR (occurrence: BR)
  Receive Date: 20160413
  Receipt Date: 20160413
  Transmission Date: 20160815
  Serious: Yes (Other)
  Sender: FDA-Public Use
  Company Number: BR-EMD SERONO-8076723

PATIENT
  Age: 46 Year
  Sex: Male

DRUGS (1)
  1. SAIZEN [Suspect]
     Active Substance: SOMATROPIN
     Indication: PREMATURE AGEING
     Dates: start: 20160329

REACTIONS (3)
  - Off label use [Unknown]
  - Overdose [Unknown]
  - Shock [Unknown]

NARRATIVE: CASE EVENT DATE: 20160329
